FAERS Safety Report 6878215-2 (Version None)
Quarter: 2010Q3

REPORT INFORMATION
  Report Type: 
  Country: None (occurrence: None)
  Receive Date: 20100728
  Receipt Date: 20100720
  Transmission Date: 20110219
  Serious: Yes (Other)
  Sender: FDA-Public Use
  Company Number: AU-PFIZER INC-2010090676

PATIENT
  Age: 77 Year
  Sex: Female

DRUGS (1)
  1. PYRALIN [Suspect]
     Dosage: 500 MG, 2X/DAY

REACTIONS (8)
  - CONFUSIONAL STATE [None]
  - DYSPEPSIA [None]
  - DYSURIA [None]
  - GENERAL PHYSICAL CONDITION ABNORMAL [None]
  - LOSS OF CONTROL OF LEGS [None]
  - POLLAKIURIA [None]
  - URINE FLOW DECREASED [None]
  - VERTIGO [None]
